FAERS Safety Report 13382900 (Version 1)
Quarter: 2017Q1

REPORT INFORMATION
  Report Type: Spontaneous
  Country: BR (occurrence: BR)
  Receive Date: 20170329
  Receipt Date: 20170329
  Transmission Date: 20170429
  Serious: Yes (Other)
  Sender: FDA-Public Use
  Company Number: BR-PFIZER INC-2017082657

PATIENT
  Age: 90 Year
  Sex: Female
  Weight: 55 kg

DRUGS (12)
  1. ZYVOX [Suspect]
     Active Substance: LINEZOLID
     Indication: ANTIBIOTIC THERAPY
     Dosage: UNK
  2. MERONEM [Concomitant]
     Active Substance: MEROPENEM
     Dosage: 3 G, DAILY
     Route: 042
     Dates: start: 20170205, end: 20170208
  3. NOVALGINA [Concomitant]
     Active Substance: METAMIZOLE SODIUM
     Dosage: 8 G, DAILY
     Route: 042
     Dates: start: 20161228, end: 20170220
  4. ZYVOX [Suspect]
     Active Substance: LINEZOLID
     Indication: SEPTIC SHOCK
     Dosage: 600 MG, EVERY 12 HOURS
     Route: 042
     Dates: start: 20170205, end: 20170207
  5. DIGESAN /00576701/ [Concomitant]
     Dosage: 30 MG, DAILY
     Route: 042
     Dates: start: 20161227, end: 20170213
  6. TAMARINE /00746201/ [Concomitant]
     Dosage: 2 DF, DAILY
  7. DIMORF [Concomitant]
     Active Substance: MORPHINE SULFATE
     Dosage: 2 MG, DAILY
     Route: 042
     Dates: start: 20161228, end: 20170220
  8. LUFTAL /00159501/ [Concomitant]
     Dosage: 360 MG, DAILY
     Dates: start: 20170205, end: 20170213
  9. HEMOFOL [Concomitant]
     Dosage: 10000 IU, DAILY
     Route: 058
     Dates: start: 20170206, end: 20170220
  10. IONCLOR [Concomitant]
     Dosage: 5.4 G, DAILY
     Dates: start: 20170121, end: 20170213
  11. MOTILIUM [Concomitant]
     Active Substance: DOMPERIDONE
     Dosage: 30 MG, DAILY
  12. PANTOZOL [Concomitant]
     Active Substance: PANTOPRAZOLE SODIUM
     Dosage: 40 MG, DAILY
     Route: 042

REACTIONS (2)
  - Rash [Recovered/Resolved]
  - Hyperaemia [Recovered/Resolved]

NARRATIVE: CASE EVENT DATE: 20170207
